FAERS Safety Report 9297340 (Version 1)
Quarter: 2013Q2

REPORT INFORMATION
  Report Type: Spontaneous
  Country: US (occurrence: US)
  Receive Date: 20130520
  Receipt Date: 20130520
  Transmission Date: 20140414
  Serious: No
  Sender: FDA-Public Use
  Company Number: US-BIOGENIDEC-2013BI044474

PATIENT
  Sex: Female

DRUGS (1)
  1. TYSABRI [Suspect]
     Indication: MULTIPLE SCLEROSIS
     Route: 042
     Dates: start: 20130411

REACTIONS (5)
  - Aphasia [Unknown]
  - Disturbance in attention [Unknown]
  - Depressed mood [Not Recovered/Not Resolved]
  - Mental impairment [Unknown]
  - Asthenia [Unknown]
